FAERS Safety Report 7520116-0 (Version None)
Quarter: 2011Q2

REPORT INFORMATION
  Report Type: 
  Country: None (occurrence: None)
  Receive Date: 20110602
  Receipt Date: 20110527
  Transmission Date: 20111010
  Serious: Yes (Death, Other)
  Sender: FDA-Public Use
  Company Number: JP-ROCHE-723830

PATIENT
  Sex: Female

DRUGS (11)
  1. RIFABUTIN [Concomitant]
     Route: 048
  2. NORVIR [Concomitant]
     Route: 048
     Dates: start: 20090804, end: 20091110
  3. CLARITHROMYCIN [Concomitant]
     Route: 048
     Dates: start: 20091110, end: 20091226
  4. RIFABUTIN [Concomitant]
     Route: 048
     Dates: start: 20091111, end: 20091226
  5. ZITHROMAX [Concomitant]
     Route: 048
     Dates: start: 20090724, end: 20091109
  6. ETHAMBUTOL HYDROCHLORIDE [Concomitant]
     Dosage: DRUG NAME: EBUTOL
     Route: 048
     Dates: start: 20091110, end: 20100210
  7. VALGANCICLOVIR [Suspect]
     Indication: CYTOMEGALOVIRUS INFECTION
     Route: 048
     Dates: start: 20090813, end: 20100210
  8. ZITHROMAX [Concomitant]
     Route: 048
     Dates: start: 20091227, end: 20100210
  9. ISENTRESS [Concomitant]
     Route: 048
     Dates: start: 20091111, end: 20100210
  10. REYATAZ [Concomitant]
     Route: 048
     Dates: start: 20090804, end: 20091110
  11. TRUVADA [Concomitant]
     Dosage: TDD: 1 TAB
     Route: 048
     Dates: start: 20090804, end: 20100210

REACTIONS (5)
  - CYTOMEGALOVIRUS VIRAEMIA [None]
  - MULTI-ORGAN FAILURE [None]
  - HISTIOCYTOSIS HAEMATOPHAGIC [None]
  - ATYPICAL MYCOBACTERIAL INFECTION [None]
  - AIDS ENCEPHALOPATHY [None]
